FAERS Safety Report 17734555 (Version 1)
Quarter: 2020Q2

REPORT INFORMATION
  Report Type: Spontaneous
  Country: DE (occurrence: RU)
  Receive Date: 20200501
  Receipt Date: 20200501
  Transmission Date: 20200714
  Serious: Yes (Other)
  Sender: FDA-Public Use
  Company Number: RU-ELI_LILLY_AND_COMPANY-RU202004012304

PATIENT
  Age: 53 Year
  Sex: Male
  Weight: 73 kg

DRUGS (6)
  1. 5 FU [Concomitant]
     Active Substance: FLUOROURACIL
     Indication: COLON CANCER METASTATIC
     Dosage: 400 MG/M2, UNK
     Dates: start: 20161101, end: 20170516
  2. ERBITUX [Suspect]
     Active Substance: CETUXIMAB
     Dosage: 250 MG/M2, UNK
     Route: 065
  3. ERBITUX [Suspect]
     Active Substance: CETUXIMAB
     Indication: COLON CANCER METASTATIC
     Dosage: 400 MG/M2, UNK
     Route: 065
     Dates: start: 2016
  4. IRINOTECAN [Concomitant]
     Active Substance: IRINOTECAN
     Indication: COLON CANCER METASTATIC
     Dosage: 180 MG/M2, UNK
     Route: 042
     Dates: start: 20161101, end: 20170516
  5. LEUCOVORINE [Concomitant]
     Active Substance: LEUCOVORIN
     Indication: COLON CANCER METASTATIC
     Dosage: 400 MG/M2, UNK
     Route: 042
     Dates: start: 20161101, end: 20170516
  6. 5 FU [Concomitant]
     Active Substance: FLUOROURACIL
     Dosage: 2400 MG/M2, UNK
     Route: 042
     Dates: start: 20161101, end: 20170516

REACTIONS (1)
  - Pulmonary renal syndrome [Unknown]

NARRATIVE: CASE EVENT DATE: 2016
